FAERS Safety Report 10227507 (Version 1)
Quarter: 2014Q2

REPORT INFORMATION
  Report Type: Spontaneous
  Country: BE (occurrence: BE)
  Receive Date: 20140610
  Receipt Date: 20140610
  Transmission Date: 20141212
  Serious: Yes (Death, Other)
  Sender: FDA-Public Use
  Company Number: PHHY2014BE070426

PATIENT
  Age: 55 Year
  Sex: Female

DRUGS (14)
  1. ZOLEDRONATE [Suspect]
     Indication: METASTASES TO LIVER
     Dosage: 4 MG, FOR 4 WEEKS
     Dates: start: 201012
  2. ZOLEDRONATE [Suspect]
     Indication: METASTASES TO BONE
  3. ZOLEDRONATE [Suspect]
     Indication: PANCREATIC NEUROENDOCRINE TUMOUR
  4. EVEROLIMUS [Suspect]
     Indication: METASTASES TO LIVER
     Dosage: 10 MG, PER DAY
     Dates: start: 201012
  5. EVEROLIMUS [Suspect]
     Indication: METASTASES TO BONE
  6. EVEROLIMUS [Suspect]
     Indication: PANCREATIC NEUROENDOCRINE TUMOUR
  7. LANREOTIDE [Concomitant]
     Indication: PANCREATIC NEUROENDOCRINE TUMOUR
     Dosage: 120 MG/4 WEEKS
     Route: 058
     Dates: end: 200908
  8. LANREOTIDE [Concomitant]
     Dosage: 120 MG/4 WEEKS
     Route: 058
     Dates: start: 200909
  9. LANREOTIDE [Concomitant]
     Dosage: 120 MG/4 WEEKS
     Route: 058
     Dates: start: 200910, end: 201008
  10. LANREOTIDE [Concomitant]
     Dosage: 120 MG/4 WEEKS
     Route: 058
     Dates: start: 201008
  11. LANREOTIDE [Concomitant]
     Dosage: 120 MG/4 WEEKS
     Route: 058
     Dates: start: 201009
  12. LANREOTIDE [Concomitant]
     Dosage: 120 MG/4 WEEKS
     Route: 058
     Dates: start: 201010, end: 201011
  13. LANREOTIDE [Concomitant]
     Dosage: 120 MG/4 WEEKS
     Route: 058
     Dates: start: 201012
  14. BISOPROLOL [Concomitant]
     Indication: HYPERTENSION
     Dosage: 10 MG, UNK

REACTIONS (4)
  - Death [Fatal]
  - Hepatic failure [Unknown]
  - Pancreatic neuroendocrine tumour [Unknown]
  - Malignant neoplasm progression [Unknown]
